FAERS Safety Report 16883069 (Version 1)
Quarter: 2019Q4

REPORT INFORMATION
  Report Type: Spontaneous
  Country: BE (occurrence: BE)
  Receive Date: 20191004
  Receipt Date: 20191004
  Transmission Date: 20200122
  Serious: Yes (Hospitalization, Other)
  Sender: FDA-Public Use
  Company Number: BE-SA-2019SA266715

PATIENT
  Age: 58 Year
  Sex: Male

DRUGS (5)
  1. LORMETAZEPAM [Concomitant]
     Active Substance: LORMETAZEPAM
     Dosage: 2 MG, QD
     Route: 048
  2. AMIKACIN. [Concomitant]
     Active Substance: AMIKACIN
     Dosage: 1000 MG, QD
     Route: 042
  3. RANITIDINE. [Suspect]
     Active Substance: RANITIDINE
     Indication: PEPTIC ULCER
     Dosage: UNK, UNK
     Route: 048
  4. HEPARIN [Concomitant]
     Active Substance: HEPARIN SODIUM
     Dosage: 3X5.000IU S.C. DAILY
     Route: 058
  5. ORNIDAZOLE [Concomitant]
     Active Substance: ORNIDAZOLE
     Dosage: 2 X L GR L.V. DAILY
     Route: 042

REACTIONS (13)
  - Abdominal pain upper [Recovering/Resolving]
  - Drug-induced liver injury [Recovering/Resolving]
  - Eosinophilia [Recovering/Resolving]
  - Faeces pale [Recovering/Resolving]
  - Liver function test abnormal [Recovering/Resolving]
  - Chills [Recovering/Resolving]
  - Pruritus [Recovering/Resolving]
  - Asthenia [Recovering/Resolving]
  - Tenderness [Recovering/Resolving]
  - Rash erythematous [Recovering/Resolving]
  - Chromaturia [Recovering/Resolving]
  - Hepatitis cholestatic [Recovering/Resolving]
  - Vomiting [Recovering/Resolving]
